FAERS Safety Report 8550972-9 (Version None)
Quarter: 2012Q3

REPORT INFORMATION
  Report Type: 
  Country: None (occurrence: None)
  Receive Date: 20120730
  Receipt Date: 20120725
  Transmission Date: 20120928
  Serious: Yes (Other)
  Sender: FDA-Public Use
  Company Number: US-PFIZER INC-2012166751

PATIENT
  Sex: Female
  Weight: 67.12 kg

DRUGS (17)
  1. PREMARIN [Suspect]
     Indication: HORMONE REPLACEMENT THERAPY
     Dosage: UNK
     Route: 067
     Dates: end: 20120101
  2. BUMEX [Concomitant]
     Indication: FLUID RETENTION
     Dosage: 2 MG, 2X/DAY
  3. DILTIAZEM [Concomitant]
     Indication: HYPERTENSION
  4. LORTAB [Concomitant]
     Indication: PAIN
     Dosage: 10/500, MG, EVERY SIX HOURS
  5. GEMFIBROZIL [Concomitant]
     Dosage: 600 MG, UNK
  6. BENTYL [Concomitant]
     Indication: ABDOMINAL PAIN UPPER
     Dosage: 20 MG, 3X/DAY
  7. COUMADIN [Concomitant]
     Indication: ANTICOAGULANT THERAPY
     Dosage: 2 MG, DAILY
  8. DILT-CD [Concomitant]
     Indication: HYPERTENSION
     Dosage: 300 MG, DAILY
     Route: 048
  9. PREMARIN [Suspect]
     Dosage: UNK
     Route: 067
     Dates: start: 20120101
  10. METFORMIN [Concomitant]
     Indication: DIABETES MELLITUS
     Dosage: 1000 MG, 2X/DAY
  11. LIPOSYN [Concomitant]
     Indication: BLOOD TRIGLYCERIDES ABNORMAL
     Dosage: 150 MG, UNK
  12. METOPROLOL [Concomitant]
     Indication: HYPERTENSION
  13. DILTIAZEM [Concomitant]
     Indication: FLUID RETENTION
     Dosage: 300 MG, DAILY
  14. POTASSIUM [Concomitant]
     Indication: BLOOD POTASSIUM DECREASED
     Dosage: 80 MEQ, EVERY SIX HOURS
     Route: 048
  15. LISINOPRIL [Concomitant]
     Indication: CARDIAC DISORDER
     Dosage: 2.5 MG, 2X/DAY
  16. PLAVIX [Concomitant]
     Indication: CARDIAC DISORDER
     Dosage: 75 MG, UNK
  17. METOPROLOL [Concomitant]
     Indication: CARDIAC DISORDER
     Dosage: 100 MG, 2X/DAY

REACTIONS (8)
  - CEREBROVASCULAR ACCIDENT [None]
  - HYPERHIDROSIS [None]
  - RENAL DISORDER [None]
  - DECREASED ACTIVITY [None]
  - HOT FLUSH [None]
  - PANIC ATTACK [None]
  - FEELING HOT [None]
  - FEELING ABNORMAL [None]
